FAERS Safety Report 12754136 (Version 2)
Quarter: 2016Q3

REPORT INFORMATION
  Report Type: Spontaneous
  Country: TR (occurrence: TR)
  Receive Date: 20160916
  Receipt Date: 20160926
  Transmission Date: 20161109
  Serious: Yes (Other)
  Sender: FDA-Public Use
  Company Number: TR-ROCHE-1829585

PATIENT
  Age: 31 Year
  Sex: Male

DRUGS (4)
  1. VITAMIN A [Concomitant]
     Active Substance: VITAMIN A
     Indication: PNEUMONIA MEASLES
     Dosage: 200000 U
     Route: 065
  2. RIBAVIRIN. [Suspect]
     Active Substance: RIBAVIRIN
     Indication: PNEUMONIA MEASLES
     Dosage: LOADING DOSE
     Route: 042
  3. RIBAVIRIN. [Suspect]
     Active Substance: RIBAVIRIN
     Indication: RESPIRATORY DISTRESS
     Route: 042
  4. VITAMIN A [Concomitant]
     Active Substance: VITAMIN A
     Indication: RESPIRATORY FAILURE

REACTIONS (1)
  - Acute kidney injury [Recovering/Resolving]
